FAERS Safety Report 4576234-2 (Version None)
Quarter: 2005Q1

REPORT INFORMATION
  Report Type: 
  Country: None (occurrence: None)
  Receive Date: 20050119
  Receipt Date: 20041030
  Transmission Date: 20050727
  Serious: Yes (Hospitalization, Disabling)
  Sender: FDA-Public Use
  Company Number: A03200403722

PATIENT
  Age: 69 Year
  Sex: Male
  Weight: 72.5755 kg

DRUGS (6)
  1. PLAVIX [Suspect]
     Indication: STENT PLACEMENT
     Dosage: 75 MG QD - ORAL
     Route: 048
     Dates: start: 20031001, end: 20040501
  2. DIGITALIS [Concomitant]
     Indication: CORONARY ARTERY DISEASE
  3. ACETYLSALICYLIC ACID [Concomitant]
  4. INSULIN [Concomitant]
  5. BLOOD PRESSURE LOWERING MEDICATION [Concomitant]
  6. CHOLESTEROL [Concomitant]

REACTIONS (1)
  - HAEMORRHAGIC STROKE [None]
